FAERS Safety Report 14510910 (Version 5)
Quarter: 2019Q1

REPORT INFORMATION
  Report Type: Report from Study
  Country: DE (occurrence: DE)
  Receive Date: 20180209
  Receipt Date: 20190306
  Transmission Date: 20190417
  Serious: No
  Sender: FDA-Public Use
  Company Number: DE-ROCHE-2068968

PATIENT
  Age: 52 Year
  Sex: Male

DRUGS (10)
  1. TIOBLIS [Concomitant]
     Active Substance: ATORVASTATIN CALCIUM\EZETIMIBE
     Dosage: FORM STRENGTH: 10MG/40MG
     Route: 065
  2. LASEA [Concomitant]
     Route: 065
  3. OCREVUS [Suspect]
     Active Substance: OCRELIZUMAB
     Route: 042
     Dates: start: 20180701
  4. OCREVUS [Suspect]
     Active Substance: OCRELIZUMAB
     Indication: PRIMARY PROGRESSIVE MULTIPLE SCLEROSIS
     Dosage: THEN 600 MG
     Route: 042
     Dates: start: 20170715
  5. FAMPYRA [Concomitant]
     Active Substance: DALFAMPRIDINE
     Route: 065
  6. DEKRISTOL [Concomitant]
     Active Substance: CHOLECALCIFEROL
     Route: 065
  7. TADIN (GERMANY) [Concomitant]
     Route: 065
  8. DEKRISTOL [Concomitant]
     Active Substance: CHOLECALCIFEROL
     Route: 065
  9. MIRTAZAPIN [Concomitant]
     Active Substance: MIRTAZAPINE
     Dosage: IN THE EVENING
     Route: 065
  10. BALDRIAN [Concomitant]
     Active Substance: VALERIAN
     Dosage: AS REQUIRED
     Route: 065

REACTIONS (5)
  - B-lymphocyte count increased [Recovered/Resolved]
  - Infection susceptibility increased [Not Recovered/Not Resolved]
  - Abdominal pain upper [Not Recovered/Not Resolved]
  - Loose tooth [Recovered/Resolved]
  - Heart rate increased [Recovered/Resolved]

NARRATIVE: CASE EVENT DATE: 20180423
